FAERS Safety Report 15656963 (Version 1)
Quarter: 2018Q4

REPORT INFORMATION
  Report Type: Spontaneous
  Country: US (occurrence: US)
  Receive Date: 20181126
  Receipt Date: 20181126
  Transmission Date: 20190205
  Serious: Yes (Hospitalization)
  Sender: FDA-Public Use
  Company Number: None

PATIENT
  Age: 41 Year
  Sex: Female
  Weight: 56.25 kg

DRUGS (1)
  1. NATURE-THROID [Suspect]
     Active Substance: THYROID, PORCINE
     Indication: HYPOTHYROIDISM
     Dosage: ?          QUANTITY:30 TABLET(S);?
     Route: 048
     Dates: start: 20180912, end: 20181125

REACTIONS (5)
  - Condition aggravated [None]
  - Hypothyroidism [None]
  - Drug ineffective [None]
  - Manufacturing materials issue [None]
  - Loss of employment [None]

NARRATIVE: CASE EVENT DATE: 20181121
